FAERS Safety Report 13181275 (Version 1)
Quarter: 2017Q1

REPORT INFORMATION
  Report Type: Spontaneous
  Country: US (occurrence: US)
  Receive Date: 20170202
  Receipt Date: 20170202
  Transmission Date: 20170428
  Serious: No
  Sender: FDA-Public Use
  Company Number: US-SMITH AND NEPHEW, INC-2016SMT01094

PATIENT
  Age: 72 Year
  Sex: Female
  Weight: 95.24 kg

DRUGS (9)
  1. REGRANEX [Suspect]
     Active Substance: BECAPLERMIN
     Indication: WOUND
     Dosage: UNK UNK, 1X/DAY (12 HOURS ON, 12 HOURS OFF)
     Route: 061
     Dates: start: 20161109
  2. TURMERIC [Concomitant]
     Active Substance: TURMERIC
  3. VITAMIN C [Concomitant]
     Active Substance: ASCORBIC ACID
     Dosage: 2 TABLETS, 1X/DAY
  4. MAGNESIUM [Concomitant]
     Active Substance: MAGNESIUM
     Dosage: 500 MG, 1X/DAY
  5. UNSPECIFIED BLOOD PRESSURE MEDICATIONS [Concomitant]
  6. LEVOTHYROXINE. [Concomitant]
     Active Substance: LEVOTHYROXINE
  7. VITAMIN D [Concomitant]
     Active Substance: CHOLECALCIFEROL
     Dosage: 5000 IU, 1X/DAY
  8. GABAPENTIN. [Concomitant]
     Active Substance: GABAPENTIN
  9. METFORMIN [Concomitant]
     Active Substance: METFORMIN HYDROCHLORIDE

REACTIONS (2)
  - Wound haemorrhage [Recovering/Resolving]
  - Wound complication [Recovering/Resolving]

NARRATIVE: CASE EVENT DATE: 201611
